FAERS Safety Report 7091971-6 (Version None)
Quarter: 2010Q4

REPORT INFORMATION
  Report Type: 
  Country: None (occurrence: None)
  Receive Date: 20101109
  Receipt Date: 20101101
  Transmission Date: 20110411
  Serious: Yes (Other)
  Sender: FDA-Public Use
  Company Number: JP-JNJFOC-20101101869

PATIENT

DRUGS (2)
  1. LOPEMIN [Suspect]
     Indication: ILL-DEFINED DISORDER
     Route: 048
  2. MULTIPLE OTHER MEDICATIONS [Suspect]
     Indication: ILL-DEFINED DISORDER
     Route: 065

REACTIONS (1)
  - INTESTINAL PERFORATION [None]
